FAERS Safety Report 17054144 (Version 2)
Quarter: 2019Q4

REPORT INFORMATION
  Report Type: Report from Study
  Country: IL (occurrence: IL)
  Receive Date: 20191120
  Receipt Date: 20191223
  Transmission Date: 20200122
  Serious: Yes (Hospitalization, Other)
  Sender: FDA-Public Use
  Company Number: PHHY2019IL195452

PATIENT
  Age: 48 Year
  Sex: Female

DRUGS (3)
  1. COSENTYX [Suspect]
     Active Substance: SECUKINUMAB
     Indication: ANKYLOSING SPONDYLITIS
     Dosage: 150 MG, QW
     Route: 058
     Dates: start: 20190809
  2. COSENTYX [Suspect]
     Active Substance: SECUKINUMAB
     Dosage: UNK
     Route: 065
     Dates: start: 201909
  3. COSENTYX [Suspect]
     Active Substance: SECUKINUMAB
     Dosage: 150 MG, QMO
     Route: 030

REACTIONS (6)
  - Vision blurred [Not Recovered/Not Resolved]
  - Incorrect route of product administration [Unknown]
  - Optic atrophy [Unknown]
  - Headache [Recovered/Resolved]
  - Feeling cold [Recovered/Resolved]
  - Retinal vascular occlusion [Unknown]

NARRATIVE: CASE EVENT DATE: 20190809
